FAERS Safety Report 15230115 (Version 1)
Quarter: 2018Q3

REPORT INFORMATION
  Report Type: Spontaneous
  Country: US (occurrence: US)
  Receive Date: 20180802
  Receipt Date: 20180802
  Transmission Date: 20181010
  Serious: Yes (Other)
  Sender: FDA-Public Use
  Company Number: US-ACCORD-065267

PATIENT
  Age: 47 Year
  Sex: Female
  Weight: 55.34 kg

DRUGS (11)
  1. PARAPLATIN [Suspect]
     Active Substance: CARBOPLATIN
     Indication: INTRADUCTAL PROLIFERATIVE BREAST LESION
     Dosage: NUMBER OF CYCLES:  06
     Dates: start: 20140416, end: 20140729
  2. DEXAMETHASONE. [Concomitant]
     Active Substance: DEXAMETHASONE
  3. EMEND [Concomitant]
     Active Substance: APREPITANT
  4. ONDANSETRON [Concomitant]
     Active Substance: ONDANSETRON
  5. NEULASTA [Concomitant]
     Active Substance: PEGFILGRASTIM
  6. DOCETAXEL ACCORD [Suspect]
     Active Substance: DOCETAXEL
     Indication: INTRADUCTAL PROLIFERATIVE BREAST LESION
     Dosage: NUMBER OF CYCLES:  06 ?DOSAGE: 120 MG;122 MG;124 MG;100 MG
     Dates: start: 20140416, end: 20140729
  7. HERCEPTIN [Suspect]
     Active Substance: TRASTUZUMAB
     Indication: INTRADUCTAL PROLIFERATIVE BREAST LESION
     Dosage: NUMBER OF CYCLES:  06
     Dates: start: 20140416, end: 20140729
  8. PEPCID [Concomitant]
     Active Substance: FAMOTIDINE
     Route: 042
  9. MOXIFLOXACIN. [Concomitant]
     Active Substance: MOXIFLOXACIN
  10. ALOXI [Concomitant]
     Active Substance: PALONOSETRON HYDROCHLORIDE
  11. ZOFRAN [Concomitant]
     Active Substance: ONDANSETRON HYDROCHLORIDE

REACTIONS (1)
  - Alopecia [Not Recovered/Not Resolved]

NARRATIVE: CASE EVENT DATE: 20140507
